FAERS Safety Report 9994604 (Version 8)
Quarter: 2014Q2

REPORT INFORMATION
  Report Type: Spontaneous
  Country: ES (occurrence: ES)
  Receive Date: 20140311
  Receipt Date: 20140623
  Transmission Date: 20141212
  Serious: Yes (Other)
  Sender: FDA-Public Use
  Company Number: ES-AMGEN-ESPSP2014008899

PATIENT
  Age: 65 Year
  Sex: Female

DRUGS (11)
  1. ENBREL [Suspect]
     Indication: RHEUMATOID ARTHRITIS
     Dosage: 50 MG, WEEKLY
     Route: 058
     Dates: start: 20131209
  2. ENBREL [Suspect]
     Dosage: UNK
  3. METHOTREXATE                       /00113802/ [Suspect]
     Indication: RHEUMATOID ARTHRITIS
     Dosage: 2.5 MG, 4X/WEEK
     Route: 048
  4. METHOTREXATE                       /00113802/ [Suspect]
     Dosage: UNK
     Route: 065
  5. DACORTIN [Suspect]
     Indication: PRODUCT USED FOR UNKNOWN INDICATION
     Dosage: UNK
     Route: 065
  6. ACFOL [Concomitant]
     Indication: PROPHYLAXIS
     Dosage: FOR 4 DAYS IN A WEEK
  7. DEZACOR [Concomitant]
     Indication: RHEUMATOID ARTHRITIS
     Dosage: 6 MG, 1X/DAY
  8. OMEPRAZOL                          /00661201/ [Concomitant]
     Indication: PROPHYLAXIS AGAINST GASTROINTESTINAL ULCER
     Dosage: 40 MG, 1X/DAY
  9. PAZITAL [Concomitant]
     Indication: PAIN
     Dosage: 1-3 X/DAY
  10. CEMIDON [Concomitant]
     Dosage: 300 UNK, 1X/DAY
  11. AIRTAL [Concomitant]
     Dosage: 100 MG, 1X/DAY

REACTIONS (27)
  - Decreased immune responsiveness [Unknown]
  - Drug effect incomplete [Not Recovered/Not Resolved]
  - Tongue pruritus [Recovered/Resolved]
  - Nausea [Not Recovered/Not Resolved]
  - Dizziness [Not Recovered/Not Resolved]
  - Vomiting [Not Recovered/Not Resolved]
  - Renal disorder [Unknown]
  - Asthenia [Unknown]
  - Depressed mood [Not Recovered/Not Resolved]
  - Ear pruritus [Recovered/Resolved]
  - Increased appetite [Not Recovered/Not Resolved]
  - Dry mouth [Not Recovered/Not Resolved]
  - Feeling abnormal [Unknown]
  - Diarrhoea [Unknown]
  - Musculoskeletal stiffness [Unknown]
  - Fall [Unknown]
  - Injection site pain [Not Recovered/Not Resolved]
  - Injection site inflammation [Not Recovered/Not Resolved]
  - Injection site erythema [Not Recovered/Not Resolved]
  - Pain [Unknown]
  - Pain in extremity [Unknown]
  - Malaise [Not Recovered/Not Resolved]
  - Hypoaesthesia [Recovered/Resolved]
  - Local swelling [Unknown]
  - Diaphragmatic disorder [Recovered/Resolved]
  - Choking sensation [Recovered/Resolved]
  - Angina pectoris [Recovered/Resolved]
